FAERS Safety Report 25315236 (Version 1)
Quarter: 2025Q2

REPORT INFORMATION
  Report Type: Spontaneous
  Country: US (occurrence: US)
  Receive Date: 20250514
  Receipt Date: 20250514
  Transmission Date: 20250716
  Serious: No
  Sender: SCIEGEN PHARMACEUTICALS INC
  Company Number: US-SCIEGENP-2025SCSPO00066

PATIENT
  Age: 66 Year
  Sex: Female
  Weight: 197 kg

DRUGS (1)
  1. BUPROPION HYDROCHLORIDE [Suspect]
     Active Substance: BUPROPION HYDROCHLORIDE
     Indication: Depression
     Route: 065
     Dates: start: 19851231

REACTIONS (4)
  - Hypoacusis [Unknown]
  - Body temperature fluctuation [Recovered/Resolved]
  - Fall [Unknown]
  - Memory impairment [None]

NARRATIVE: CASE EVENT DATE: 20190630
